FAERS Safety Report 26104518 (Version 1)
Quarter: 2025Q4

REPORT INFORMATION
  Report Type: Report from Study
  Country: CO (occurrence: CO)
  Receive Date: 20251130
  Receipt Date: 20251130
  Transmission Date: 20260117
  Serious: Yes (Hospitalization)
  Sender: ABBVIE
  Company Number: CO-ABBVIE-6565588

PATIENT
  Age: 82 Year
  Sex: Male
  Weight: 70 kg

DRUGS (1)
  1. VENCLEXTA [Suspect]
     Active Substance: VENETOCLAX
     Indication: Acute myeloid leukaemia
     Dosage: STRENGTH: 100 MG?VENCLEXTA BOTTLE 100 MG
     Route: 048
     Dates: start: 20230621, end: 20251117

REACTIONS (5)
  - Haemorrhage intracranial [Not Recovered/Not Resolved]
  - Weight decreased [Unknown]
  - Pulmonary congestion [Unknown]
  - Cough [Unknown]
  - Influenza like illness [Not Recovered/Not Resolved]

NARRATIVE: CASE EVENT DATE: 20251101
